FAERS Safety Report 14534384 (Version 1)
Quarter: 2018Q1

REPORT INFORMATION
  Report Type: Spontaneous
  Country: US (occurrence: US)
  Receive Date: 20180215
  Receipt Date: 20180215
  Transmission Date: 20180509
  Serious: No
  Sender: FDA-Public Use
  Company Number: US-BAYER-2018-024221

PATIENT
  Age: 80 Year
  Sex: Male
  Weight: 109 kg

DRUGS (2)
  1. MIRALAX [Suspect]
     Active Substance: POLYETHYLENE GLYCOL 3350
     Indication: GASTROINTESTINAL DISORDER
     Dosage: UNK
     Route: 048
     Dates: start: 201612
  2. MULTIVITAMIN AND MINERAL [Concomitant]
     Dosage: UNK

REACTIONS (4)
  - Product prescribing issue [Unknown]
  - Decreased appetite [Not Recovered/Not Resolved]
  - Incorrect dosage administered [Unknown]
  - Dysgeusia [Not Recovered/Not Resolved]

NARRATIVE: CASE EVENT DATE: 201612
